FAERS Safety Report 6598077-0 (Version None)
Quarter: 2010Q1

REPORT INFORMATION
  Report Type: 
  Country: None (occurrence: None)
  Receive Date: 20100216
  Receipt Date: 20100119
  Transmission Date: 20100710
  Serious: Yes (Other)
  Sender: FDA-Public Use
  Company Number: 2007JP005057

PATIENT
  Age: 41 Year
  Sex: Female
  Weight: 57 kg

DRUGS (4)
  1. TACROLIMUS [Suspect]
     Indication: INTERSTITIAL LUNG DISEASE
     Dosage: 2 MG, BID, ORAL
     Route: 048
     Dates: start: 20071029, end: 20071102
  2. PREDNISOLONE [Concomitant]
  3. STOGAR (LAFUTIDINE) [Concomitant]
  4. FOSAMAC (ALENDRONATE SODIUM) [Concomitant]

REACTIONS (10)
  - CARDIOMEGALY [None]
  - CHEST PAIN [None]
  - DERMATOMYOSITIS [None]
  - INTERSTITIAL LUNG DISEASE [None]
  - MYOCARDIAL INFARCTION [None]
  - PNEUMOMEDIASTINUM [None]
  - PNEUMOTHORAX [None]
  - RASH [None]
  - RESPIRATORY FAILURE [None]
  - SUBCUTANEOUS EMPHYSEMA [None]
